FAERS Safety Report 25237366 (Version 2)
Quarter: 2025Q2

REPORT INFORMATION
  Report Type: Spontaneous
  Country: IN (occurrence: IN)
  Receive Date: 20250425
  Receipt Date: 20250430
  Transmission Date: 20250716
  Serious: Yes (Life-Threatening, Hospitalization, Disabling, Other)
  Sender: TORRENT PHARMA INC.
  Company Number: IN-TORRENT-00003944

PATIENT
  Age: 61 Year
  Sex: Male

DRUGS (1)
  1. ROSUVASTATIN [Suspect]
     Active Substance: ROSUVASTATIN
     Indication: Vascular calcification
     Dosage: 40 MG DAILY, HIGH-DOSE
     Route: 065

REACTIONS (2)
  - Myositis [Recovered/Resolved]
  - Muscle necrosis [Recovered/Resolved]
